FAERS Safety Report 11479504 (Version 1)
Quarter: 2015Q3

REPORT INFORMATION
  Report Type: Spontaneous
  Country: US (occurrence: US)
  Receive Date: 20150909
  Receipt Date: 20150909
  Transmission Date: 20151125
  Serious: No
  Sender: FDA-Public Use
  Company Number: US-JAZZ-2015-US-010378

PATIENT
  Sex: Female
  Weight: 163.26 kg

DRUGS (19)
  1. LISINOPRIL. [Concomitant]
     Active Substance: LISINOPRIL
     Indication: ILL-DEFINED DISORDER
     Dosage: UNK
     Dates: start: 20150601
  2. MAGNESIUM [Concomitant]
     Active Substance: MAGNESIUM
     Indication: PRODUCT USED FOR UNKNOWN INDICATION
     Dosage: UNK
     Dates: start: 20150601
  3. ONDANSETRON [Concomitant]
     Active Substance: ONDANSETRON
     Indication: MIGRAINE
  4. PREMARIN [Concomitant]
     Active Substance: ESTROGENS, CONJUGATED
     Indication: POLYCYSTIC OVARIES
  5. LISINOPRIL. [Concomitant]
     Active Substance: LISINOPRIL
     Indication: MIGRAINE
  6. PROAIR HFA [Concomitant]
     Active Substance: ALBUTEROL SULFATE
     Indication: PRODUCT USED FOR UNKNOWN INDICATION
     Dosage: UNK
     Dates: start: 20150611
  7. VITAMIN D3 [Concomitant]
     Active Substance: CHOLECALCIFEROL
     Indication: PRODUCT USED FOR UNKNOWN INDICATION
     Dosage: UNK
     Dates: start: 20150601
  8. XYREM [Suspect]
     Active Substance: SODIUM OXYBATE
     Dosage: 4.5 G, BID
     Route: 048
     Dates: start: 201507
  9. PREMARIN [Concomitant]
     Active Substance: ESTROGENS, CONJUGATED
     Indication: MENOPAUSE
     Dosage: UNK
     Dates: start: 20150601
  10. ARMOUR THYROID [Concomitant]
     Active Substance: THYROID, PORCINE\THYROID, UNSPECIFIED
     Indication: AUTOIMMUNE THYROIDITIS
     Dosage: UNK
     Dates: start: 20150601
  11. GABAPENTIN. [Concomitant]
     Active Substance: GABAPENTIN
     Indication: MIGRAINE
     Dosage: UNK
     Dates: start: 20150601
  12. SUMATRIPTAN. [Concomitant]
     Active Substance: SUMATRIPTAN
     Indication: MIGRAINE
     Dosage: UNK
     Dates: start: 20150601
  13. XYREM [Suspect]
     Active Substance: SODIUM OXYBATE
     Indication: CATAPLEXY
     Dosage: DOSE ADJUSTMENTS
     Route: 048
  14. MELOXICAM. [Concomitant]
     Active Substance: MELOXICAM
     Indication: PRODUCT USED FOR UNKNOWN INDICATION
     Dosage: UNK
     Dates: start: 20150601
  15. ONDANSETRON [Concomitant]
     Active Substance: ONDANSETRON
     Indication: NAUSEA
     Dosage: UNK
  16. EXCEDRIN MIGRAINE [Concomitant]
     Active Substance: ACETAMINOPHEN\ASPIRIN\CAFFEINE
     Indication: PRODUCT USED FOR UNKNOWN INDICATION
     Dosage: UNK
     Dates: start: 20150611
  17. XYREM [Suspect]
     Active Substance: SODIUM OXYBATE
     Indication: NARCOLEPSY
     Dosage: 2.25 G, BID
     Route: 048
     Dates: start: 201506, end: 201506
  18. ATENOLOL. [Concomitant]
     Active Substance: ATENOLOL
     Indication: MIGRAINE
     Dosage: UNK
     Dates: start: 20150601
  19. B-COMPLEX + VITAMIN C [Concomitant]
     Indication: PRODUCT USED FOR UNKNOWN INDICATION
     Dosage: UNK
     Dates: start: 20150601

REACTIONS (3)
  - Vertigo [Not Recovered/Not Resolved]
  - Nausea [Not Recovered/Not Resolved]
  - Dizziness [Not Recovered/Not Resolved]
